FAERS Safety Report 6095368-7 (Version None)
Quarter: 2009Q1

REPORT INFORMATION
  Report Type: 
  Country: None (occurrence: None)
  Receive Date: 20090227
  Receipt Date: 20080604
  Transmission Date: 20090719
  Serious: Yes (Hospitalization, Other)
  Sender: FDA-Public Use
  Company Number: A0716202A

PATIENT
  Age: 12 Year
  Sex: Male

DRUGS (2)
  1. LAMICTAL [Suspect]
     Indication: BIPOLAR DISORDER
     Dosage: 75MG PER DAY
     Route: 048
     Dates: start: 20080228, end: 20080316
  2. NO CONCURRENT MEDICATIONS [Concomitant]

REACTIONS (2)
  - CONJUNCTIVITIS [None]
  - RASH [None]
